FAERS Safety Report 9278287 (Version 1)
Quarter: 2013Q2

REPORT INFORMATION
  Report Type: Report from Study
  Country: FR (occurrence: FR)
  Receive Date: 20130508
  Receipt Date: 20130508
  Transmission Date: 20140414
  Serious: Yes (Hospitalization)
  Sender: FDA-Public Use
  Company Number: FR-PFIZER INC-2013129685

PATIENT
  Age: 61 Year
  Sex: Male
  Weight: 65 kg

DRUGS (9)
  1. SIROLIMUS [Suspect]
     Indication: SKIN CANCER
     Dosage: 2 MG (FREQUENCY UNKNOWN)
     Route: 048
     Dates: start: 20090311
  2. KARDEGIC [Concomitant]
     Dosage: 75 MG, UNK
     Route: 048
     Dates: start: 201107
  3. INEGY [Concomitant]
     Dosage: 10/20 MG
     Route: 048
     Dates: start: 20090925
  4. OMEXEL [Concomitant]
     Dosage: 1 DF, UNK
     Route: 048
     Dates: start: 20100324
  5. UVEDOSE [Concomitant]
     Dosage: 1 DF, EVERY 3 MONTHS
     Route: 048
     Dates: start: 20100907
  6. RENITEC [Concomitant]
     Dosage: 10 MG, UNK
     Route: 048
     Dates: start: 20101208
  7. OROCAL D3 [Concomitant]
     Dosage: 1 DF, UNK
     Route: 048
     Dates: start: 20110915
  8. CELLCEPT [Concomitant]
     Dosage: UNK
  9. SOLUPRED [Concomitant]
     Dosage: UNK

REACTIONS (1)
  - Prostate cancer [Recovered/Resolved]
